FAERS Safety Report 17011933 (Version 1)
Quarter: 2019Q4

REPORT INFORMATION
  Report Type: Spontaneous
  Country: DE (occurrence: DE)
  Receive Date: 20191108
  Receipt Date: 20191108
  Transmission Date: 20200122
  Serious: Yes (Death)
  Sender: FDA-Public Use
  Company Number: DE-PURDUE PHARMA-USA-2002-0002814

PATIENT
  Age: 44 Year
  Sex: Female

DRUGS (1)
  1. THEOPHYLLINE (040086, 087571 RHODES) [Suspect]
     Active Substance: THEOPHYLLINE ANHYDROUS
     Indication: PRODUCT USED FOR UNKNOWN INDICATION
     Dosage: 350 MG
     Route: 048

REACTIONS (5)
  - Necrosis [Fatal]
  - Toxicity to various agents [Fatal]
  - Blister [Fatal]
  - Dermatitis bullous [Fatal]
  - Coma blister [Fatal]
